FAERS Safety Report 23848150 (Version 1)
Quarter: 2024Q2

REPORT INFORMATION
  Report Type: Spontaneous
  Country: GB (occurrence: GB)
  Receive Date: 20240513
  Receipt Date: 20240513
  Transmission Date: 20240716
  Serious: Yes (Other)
  Sender: FDA-Public Use
  Company Number: GB-BRISTOL-MYERS SQUIBB COMPANY-2024-067953

PATIENT
  Age: 64 Year
  Sex: Male

DRUGS (3)
  1. INREBIC [Suspect]
     Active Substance: FEDRATINIB HYDROCHLORIDE
     Indication: Myelofibrosis
  2. LATANOPROST [Concomitant]
     Active Substance: LATANOPROST
     Indication: Angle closure glaucoma
  3. DORZOLAMIDE [Concomitant]
     Active Substance: DORZOLAMIDE
     Indication: Angle closure glaucoma

REACTIONS (2)
  - Uveitis [Recovering/Resolving]
  - Hypopyon [Recovering/Resolving]
